FAERS Safety Report 7557833-2 (Version None)
Quarter: 2011Q2

REPORT INFORMATION
  Report Type: 
  Country: None (occurrence: None)
  Receive Date: 20110620
  Receipt Date: 20110613
  Transmission Date: 20111010
  Serious: Yes (Other)
  Sender: FDA-Public Use
  Company Number: US-ABBOTT-11P-163-0732994-00

PATIENT
  Age: 33 Year
  Sex: Female

DRUGS (4)
  1. IMURAN [Concomitant]
     Indication: PRODUCT USED FOR UNKNOWN INDICATION
  2. CALTRATE WITH IRON [Concomitant]
     Indication: PRODUCT USED FOR UNKNOWN INDICATION
  3. VITAMIN B-12 [Concomitant]
     Indication: PRODUCT USED FOR UNKNOWN INDICATION
     Route: 050
  4. HUMIRA [Suspect]
     Indication: CROHN'S DISEASE
     Dates: start: 20110101, end: 20110501

REACTIONS (4)
  - DIARRHOEA [None]
  - CROHN'S DISEASE [None]
  - ILEITIS [None]
  - ABDOMINAL PAIN [None]
